FAERS Safety Report 24608726 (Version 1)
Quarter: 2024Q4

REPORT INFORMATION
  Report Type: Spontaneous
  Country: GR (occurrence: GR)
  Receive Date: 20241112
  Receipt Date: 20241112
  Transmission Date: 20250115
  Serious: Yes (Other)
  Sender: NORDIC PHARMA
  Company Number: GR-NORDICGR-057915

PATIENT
  Age: 15 Year
  Sex: Female

DRUGS (2)
  1. METHOTREXATE [Suspect]
     Active Substance: METHOTREXATE
     Indication: Takayasu^s arteritis
     Route: 065
  2. ADALIMUMAB [Concomitant]
     Active Substance: ADALIMUMAB
     Indication: Takayasu^s arteritis
     Route: 065

REACTIONS (2)
  - Glomerulonephritis [Recovered/Resolved]
  - Product use in unapproved indication [Unknown]
